FAERS Safety Report 7329472-X (Version None)
Quarter: 2011Q1

REPORT INFORMATION
  Report Type: 
  Country: None (occurrence: None)
  Receive Date: 20110225
  Receipt Date: 20110225
  Transmission Date: 20110831
  Serious: Yes (Other)
  Sender: FDA-Public Use
  Company Number: None

PATIENT
  Age: 51 Year
  Sex: Female
  Weight: 58.9676 kg

DRUGS (1)
  1. FEXOFENADINE [Suspect]
     Indication: CHRONIC SINUSITIS
     Dosage: 1 DAILY PO
     Route: 048
     Dates: start: 20110217, end: 20110218

REACTIONS (7)
  - LIP SWELLING [None]
  - PALPITATIONS [None]
  - PARAESTHESIA ORAL [None]
  - INSOMNIA [None]
  - THROAT IRRITATION [None]
  - HEADACHE [None]
  - PHARYNGEAL OEDEMA [None]
